FAERS Safety Report 11797605 (Version 1)
Quarter: 2015Q4

REPORT INFORMATION
  Report Type: Spontaneous
  Country: US (occurrence: None)
  Receive Date: 20151202
  Receipt Date: 20151202
  Transmission Date: 20160305
  Serious: Yes (Disabling, Other)
  Sender: FDA-Public Use
  Company Number: None

PATIENT
  Age: 29 Year
  Sex: Female
  Weight: 52.16 kg

DRUGS (5)
  1. ACZONE [Concomitant]
     Active Substance: DAPSONE
  2. TAMSULOSIN [Concomitant]
     Active Substance: TAMSULOSIN
  3. CLARITIN [Concomitant]
     Active Substance: LORATADINE
  4. MAGNEVIST [Suspect]
     Active Substance: GADOPENTETATE DIMEGLUMINE
     Indication: NUCLEAR MAGNETIC RESONANCE IMAGING
     Dosage: INTO A VEIN
     Dates: start: 20150925, end: 20150925
  5. DEXILANT [Concomitant]
     Active Substance: DEXLANSOPRAZOLE

REACTIONS (22)
  - Pain [None]
  - Memory impairment [None]
  - Tremor [None]
  - Cognitive disorder [None]
  - Burning sensation [None]
  - Impaired self-care [None]
  - Injection site pain [None]
  - Arthritis [None]
  - Activities of daily living impaired [None]
  - Headache [None]
  - Altered visual depth perception [None]
  - Paraesthesia [None]
  - Pain in extremity [None]
  - Arthralgia [None]
  - Muscle twitching [None]
  - Bone pain [None]
  - Dysgeusia [None]
  - Chills [None]
  - Joint swelling [None]
  - Muscular weakness [None]
  - Tinnitus [None]
  - Disturbance in attention [None]

NARRATIVE: CASE EVENT DATE: 20150925
